FAERS Safety Report 7134258-5 (Version None)
Quarter: 2010Q4

REPORT INFORMATION
  Report Type: 
  Country: None (occurrence: None)
  Receive Date: 20101203
  Receipt Date: 20101125
  Transmission Date: 20110411
  Serious: Yes (Death, Other)
  Sender: FDA-Public Use
  Company Number: DE-PFIZER INC-2010160534

PATIENT
  Age: 91 Year
  Sex: Female

DRUGS (1)
  1. HYDROXYZINE HCL [Suspect]
     Dosage: UNK
     Dates: start: 20101115, end: 20101120

REACTIONS (2)
  - MICTURITION DISORDER [None]
  - SOMNOLENCE [None]
